FAERS Safety Report 19602781 (Version 1)
Quarter: 2021Q3

REPORT INFORMATION
  Report Type: Spontaneous
  Country: CA (occurrence: CA)
  Receive Date: 20210723
  Receipt Date: 20210723
  Transmission Date: 20211014
  Serious: Yes (Other)
  Sender: FDA-Public Use
  Company Number: CA-TERSERA THERAPEUTICS LLC-2021TRS003428

PATIENT

DRUGS (3)
  1. ZOLADEX [Suspect]
     Active Substance: GOSERELIN ACETATE
     Indication: PROSTATE CANCER
     Dosage: 10.8 MG, Q12 WEEKS
     Route: 058
     Dates: start: 20201228
  2. ZOLADEX [Suspect]
     Active Substance: GOSERELIN ACETATE
     Dosage: 10.8 MG, Q12 WEEKS
     Route: 058
     Dates: start: 20210416
  3. ZOLADEX [Suspect]
     Active Substance: GOSERELIN ACETATE
     Dosage: 10.8 MG, Q12 WEEKS
     Route: 058
     Dates: start: 20210715

REACTIONS (12)
  - Loss of consciousness [Recovered/Resolved]
  - Dizziness [Unknown]
  - Rales [Unknown]
  - Respiratory arrest [Recovered/Resolved]
  - Pallor [Unknown]
  - Hyperhidrosis [Unknown]
  - Chest pain [Unknown]
  - Pulse absent [Recovered/Resolved]
  - Agonal respiration [Recovered/Resolved]
  - Hypotonia [Unknown]
  - Flushing [Unknown]
  - Mood swings [Unknown]

NARRATIVE: CASE EVENT DATE: 20210715
